FAERS Safety Report 20547083 (Version 2)
Quarter: 2022Q1

REPORT INFORMATION
  Report Type: Spontaneous
  Country: JP (occurrence: JP)
  Receive Date: 20220303
  Receipt Date: 20220315
  Transmission Date: 20220424
  Serious: Yes (Hospitalization, Other)
  Sender: FDA-Public Use
  Company Number: JP-BRISTOL-MYERS SQUIBB COMPANY-BMS-2022-031053

PATIENT
  Age: 40 Year
  Sex: Female

DRUGS (1)
  1. ELIQUIS [Suspect]
     Active Substance: APIXABAN
     Indication: Pulmonary venous thrombosis
     Dosage: 5 MILLIGRAM, BID
     Route: 048
     Dates: start: 202112, end: 202201

REACTIONS (3)
  - Fall [Recovered/Resolved]
  - Haematoma [Recovered/Resolved]
  - Skin necrosis [Recovered/Resolved]
